FAERS Safety Report 20074434 (Version 1)
Quarter: 2021Q4

REPORT INFORMATION
  Report Type: Spontaneous
  Country: US (occurrence: None)
  Receive Date: 20211115
  Receipt Date: 20211115
  Transmission Date: 20220303
  Serious: No
  Sender: FDA-Public Use
  Company Number: None

PATIENT
  Age: 56 Year
  Sex: Male
  Weight: 101.25 kg

DRUGS (5)
  1. CAPECITABINE [Suspect]
     Active Substance: CAPECITABINE
     Indication: Cholangiocarcinoma
     Dosage: OTHER FREQUENCY : AM,2.5PM 14/21DAYS;?
     Route: 048
     Dates: start: 20210621
  2. IBUPROFEN [Concomitant]
     Active Substance: IBUPROFEN
  3. Melatonin 10mg [Concomitant]
  4. TYLENOL EXTRA STRENGTH [Concomitant]
     Active Substance: ACETAMINOPHEN
  5. ZzzQuil 50mg/30mL [Concomitant]

REACTIONS (3)
  - Erythema [None]
  - Pruritus [None]
  - Skin exfoliation [None]

NARRATIVE: CASE EVENT DATE: 20211115
